FAERS Safety Report 6130049-2 (Version None)
Quarter: 2009Q1

REPORT INFORMATION
  Report Type: 
  Country: None (occurrence: None)
  Receive Date: 20090324
  Receipt Date: 20090316
  Transmission Date: 20090719
  Serious: Yes (Hospitalization)
  Sender: FDA-Public Use
  Company Number: DE-ABBOTT-09P-062-0563903-00

PATIENT
  Sex: Female

DRUGS (2)
  1. HUMIRA [Suspect]
     Indication: CROHN'S DISEASE
     Dates: end: 20090127
  2. HUMIRA [Suspect]
     Dates: start: 20090224

REACTIONS (2)
  - DIARRHOEA [None]
  - GASTROINTESTINAL INFLAMMATION [None]
